FAERS Safety Report 14655583 (Version 2)
Quarter: 2018Q1

REPORT INFORMATION
  Report Type: Spontaneous
  Country: US (occurrence: US)
  Receive Date: 20180319
  Receipt Date: 20180319
  Transmission Date: 20180509
  Serious: Yes (Other)
  Sender: FDA-Public Use
  Company Number: US-TEVA-2018-US-868971

PATIENT
  Age: 3 Year
  Sex: Male
  Weight: 16 kg

DRUGS (2)
  1. QVAR [Suspect]
     Active Substance: BECLOMETHASONE DIPROPIONATE
     Indication: ASTHMA
     Dosage: 4 PUFFS IN THE MORNING AND 4 PUFFS IN THE EVENING
     Dates: start: 2015
  2. QVAR [Suspect]
     Active Substance: BECLOMETHASONE DIPROPIONATE
     Dosage: 1 PUFF IN THE MORNING AND IN THE EVENING, SINCE HE WAS 18 MONTHS OLD
     Dates: start: 2015

REACTIONS (12)
  - Drug intolerance [Unknown]
  - Aggression [Unknown]
  - Drug administered to patient of inappropriate age [Unknown]
  - Abnormal behaviour [Unknown]
  - Influenza [Unknown]
  - Feeling abnormal [Unknown]
  - Memory impairment [Unknown]
  - Disorganised speech [Unknown]
  - Mood altered [Unknown]
  - Insomnia [Unknown]
  - Dysphemia [Unknown]
  - Cough [Unknown]

NARRATIVE: CASE EVENT DATE: 20180219
